FAERS Safety Report 13414275 (Version 1)
Quarter: 2017Q2

REPORT INFORMATION
  Report Type: Spontaneous
  Country: FR (occurrence: FR)
  Receive Date: 20170407
  Receipt Date: 20170407
  Transmission Date: 20170830
  Serious: Yes (Hospitalization)
  Sender: FDA-Public Use
  Company Number: FR-ROCHE-1915607

PATIENT
  Age: 37 Year
  Sex: Male

DRUGS (3)
  1. VALIUM [Suspect]
     Active Substance: DIAZEPAM
     Indication: PRODUCT USED FOR UNKNOWN INDICATION
     Route: 048
  2. BACLOFENE [Suspect]
     Active Substance: BACLOFEN
     Indication: PRODUCT USED FOR UNKNOWN INDICATION
     Route: 048
  3. DAFALGAN CODEINE [Suspect]
     Active Substance: ACETAMINOPHEN\CODEINE PHOSPHATE
     Indication: PRODUCT USED FOR UNKNOWN INDICATION
     Route: 048

REACTIONS (7)
  - Bradycardia [Recovered/Resolved]
  - Coma [Recovered/Resolved]
  - Bradypnoea [Recovered/Resolved]
  - Hypotension [Recovered/Resolved]
  - Hypothermia [Recovered/Resolved]
  - Miosis [Recovered/Resolved]
  - Conduction disorder [Recovered/Resolved]

NARRATIVE: CASE EVENT DATE: 20170222
